FAERS Safety Report 17332807 (Version 1)
Quarter: 2020Q1

REPORT INFORMATION
  Report Type: Report from Study
  Country: BR (occurrence: BR)
  Receive Date: 20200128
  Receipt Date: 20200128
  Transmission Date: 20200409
  Serious: Yes (Hospitalization, Other)
  Sender: FDA-Public Use
  Company Number: BR-UCBSA-2020002886

PATIENT
  Age: 46 Year
  Sex: Female
  Weight: 74 kg

DRUGS (2)
  1. CERTOLIZUMAB PEGOL RA [Suspect]
     Active Substance: CERTOLIZUMAB PEGOL
     Indication: RHEUMATOID ARTHRITIS
     Dosage: 200 MILLIGRAM, EV 15 DAYS
     Route: 058
     Dates: start: 201804
  2. PREGABALINA [Concomitant]
     Active Substance: PREGABALIN
     Indication: FIBROMYALGIA
     Dosage: UNK
     Route: 048

REACTIONS (2)
  - Rheumatoid arthritis [Recovering/Resolving]
  - Metabolic surgery [Unknown]

NARRATIVE: CASE EVENT DATE: 201812
